FAERS Safety Report 23247493 (Version 1)
Quarter: 2023Q4

REPORT INFORMATION
  Report Type: Spontaneous
  Country: US (occurrence: US)
  Receive Date: 20231130
  Receipt Date: 20231130
  Transmission Date: 20240109
  Serious: Yes (Other)
  Sender: FDA-Public Use
  Company Number: US-APELLIS PHARMACEUTICALS-APL-2023-002516

PATIENT
  Age: 66 Year
  Sex: Female

DRUGS (1)
  1. SYFOVRE [Suspect]
     Active Substance: PEGCETACOPLAN
     Indication: Product used for unknown indication
     Dosage: UNK, OS
     Dates: start: 20230519

REACTIONS (1)
  - Iridocyclitis [Recovered/Resolved]

NARRATIVE: CASE EVENT DATE: 20230616
